FAERS Safety Report 10445492 (Version 3)
Quarter: 2015Q4

REPORT INFORMATION
  Report Type: Report from Study
  Country: US (occurrence: US)
  Receive Date: 20140910
  Receipt Date: 20151125
  Transmission Date: 20160304
  Serious: Yes (Hospitalization, Other)
  Sender: FDA-Public Use
  Company Number: US-SA-2014SA120090

PATIENT
  Age: 65 Year
  Sex: Male

DRUGS (2)
  1. LANTUS SOLOSTAR [Suspect]
     Active Substance: INSULIN GLARGINE
     Indication: TYPE 2 DIABETES MELLITUS
     Dosage: DOSE:90 UNIT(S)
     Route: 065
     Dates: start: 2008
  2. SOLOSTAR [Concomitant]
     Active Substance: DEVICE
     Dosage: DOSE:42 UNIT(S)
     Dates: start: 2008

REACTIONS (5)
  - Cardiac failure [Unknown]
  - Diverticulitis [Unknown]
  - Clostridium difficile infection [Unknown]
  - Hypoglycaemia [Recovered/Resolved]
  - Central venous catheterisation [Unknown]

NARRATIVE: CASE EVENT DATE: 201408
